FAERS Safety Report 19308762 (Version 1)
Quarter: 2021Q2

REPORT INFORMATION
  Report Type: Spontaneous
  Country: US (occurrence: US)
  Receive Date: 20210525
  Receipt Date: 20210525
  Transmission Date: 20210717
  Serious: Yes (Death, Other)
  Sender: FDA-Public Use
  Company Number: US-INCYTE CORPORATION-2021IN004636

PATIENT

DRUGS (1)
  1. JAKAFI [Suspect]
     Active Substance: RUXOLITINIB
     Indication: POLYCYTHAEMIA VERA
     Dosage: 5 MG, TAKE 1 TABLET BY MOUTH FOR 2 DAYS, THEN TAKE ONE DAY OFF, THEN REPEAT
     Route: 048
     Dates: start: 201805

REACTIONS (1)
  - Death [Fatal]

NARRATIVE: CASE EVENT DATE: 20210407
